FAERS Safety Report 7768341-8 (Version None)
Quarter: 2011Q3

REPORT INFORMATION
  Report Type: 
  Country: None (occurrence: None)
  Receive Date: 20110922
  Receipt Date: 20110624
  Transmission Date: 20111222
  Serious: No
  Sender: FDA-Public Use
  Company Number: US-ASTRAZENECA-2011SE38601

PATIENT
  Age: 50 Year
  Sex: Male

DRUGS (4)
  1. SEROQUEL [Suspect]
     Dosage: 25 MG, HALF OF HALF TABLET
     Route: 048
  2. SEROQUEL [Suspect]
     Indication: ANXIETY
     Dosage: 25 MG HALF TABLET
     Route: 048
  3. SEROQUEL [Suspect]
     Indication: INSOMNIA
     Dosage: 25 MG HALF TABLET
     Route: 048
  4. SEROQUEL [Suspect]
     Dosage: 25 MG, HALF OF HALF TABLET
     Route: 048

REACTIONS (2)
  - SOMNOLENCE [None]
  - OFF LABEL USE [None]
